FAERS Safety Report 5720484-6 (Version None)
Quarter: 2008Q2

REPORT INFORMATION
  Report Type: 
  Country: None (occurrence: None)
  Receive Date: 20080428
  Receipt Date: 20080418
  Transmission Date: 20081010
  Serious: Yes (Hospitalization)
  Sender: FDA-Public Use
  Company Number: FR-PFIZER INC-2008035129

PATIENT
  Sex: Female

DRUGS (5)
  1. CAMPTO [Suspect]
     Indication: RECTAL CANCER
     Route: 042
     Dates: start: 20070601, end: 20071129
  2. AVASTIN [Suspect]
     Indication: RECTAL CANCER
     Route: 042
     Dates: start: 20070601, end: 20071129
  3. FLUOROURACIL [Suspect]
     Indication: RECTAL CANCER
     Route: 042
     Dates: start: 20070601, end: 20071120
  4. PREVISCAN [Suspect]
     Indication: EMBOLISM
     Route: 048
     Dates: start: 20070601, end: 20071010
  5. FOLINIC ACID [Concomitant]
     Route: 042
     Dates: start: 20070601, end: 20071129

REACTIONS (3)
  - DIARRHOEA [None]
  - HYPOKALAEMIA [None]
  - PROTHROMBIN TIME SHORTENED [None]
